FAERS Safety Report 5359131-4 (Version None)
Quarter: 2007Q2

REPORT INFORMATION
  Report Type: 
  Country: None (occurrence: None)
  Receive Date: 20070615
  Receipt Date: 20070601
  Transmission Date: 20071010
  Serious: Yes (Hospitalization)
  Sender: FDA-Public Use
  Company Number: CA-GENENTECH-237503

PATIENT
  Sex: Female
  Weight: 68 kg

DRUGS (4)
  1. BEVACIZUMAB [Suspect]
     Indication: BREAST CANCER METASTATIC
     Dosage: 1025 MG, Q3W
     Route: 042
     Dates: start: 20070207
  2. DOCETAXEL [Suspect]
     Indication: BREAST CANCER METASTATIC
     Dosage: 170 MG, Q3W
     Route: 042
     Dates: start: 20070207
  3. ZOFRAN [Concomitant]
     Indication: DRUG USE FOR UNKNOWN INDICATION
     Dates: start: 20070207, end: 20070210
  4. DECADRON [Concomitant]
     Indication: DRUG USE FOR UNKNOWN INDICATION
     Dates: start: 20070206, end: 20070208

REACTIONS (2)
  - FEBRILE NEUTROPENIA [None]
  - PYREXIA [None]
